FAERS Safety Report 7295589-1 (Version None)
Quarter: 2011Q1

REPORT INFORMATION
  Report Type: 
  Country: None (occurrence: None)
  Receive Date: 20110216
  Receipt Date: 20101214
  Transmission Date: 20110831
  Serious: No
  Sender: FDA-Public Use
  Company Number: US-ABBOTT-10P-163-0691451-00

PATIENT
  Sex: Female
  Weight: 68.554 kg

DRUGS (4)
  1. LISINOPRIL [Concomitant]
     Indication: PRODUCT USED FOR UNKNOWN INDICATION
     Route: 048
  2. OMEPRAZOLE [Concomitant]
     Indication: PRODUCT USED FOR UNKNOWN INDICATION
     Route: 048
  3. RANITIDINE [Concomitant]
     Indication: PRODUCT USED FOR UNKNOWN INDICATION
     Route: 048
  4. SIMCOR [Suspect]
     Indication: DYSLIPIDAEMIA
     Dosage: 500MG/40MG NIGHTLY
     Route: 048
     Dates: start: 20101213

REACTIONS (3)
  - FLUSHING [None]
  - PARAESTHESIA [None]
  - PRURITUS [None]
